FAERS Safety Report 7321725-4 (Version None)
Quarter: 2011Q1

REPORT INFORMATION
  Report Type: 
  Country: None (occurrence: None)
  Receive Date: 20110228
  Receipt Date: 20100721
  Transmission Date: 20110831
  Serious: Yes (Other)
  Sender: FDA-Public Use
  Company Number: US-PFIZER INC-2010091329

PATIENT
  Age: 50 Year
  Sex: Female

DRUGS (3)
  1. GEODON [Suspect]
     Dosage: 80 MG, UNK X 3 DAYS
  2. GEODON [Suspect]
     Indication: BIPOLAR I DISORDER
     Dosage: 240 MG, UNK
  3. GEODON [Suspect]
     Dosage: 160 MG, UNK X 3 DAYS

REACTIONS (1)
  - TARDIVE DYSKINESIA [None]
